FAERS Safety Report 9941612 (Version 1)
Quarter: 2014Q1

REPORT INFORMATION
  Report Type: Report from Study
  Country: US (occurrence: US)
  Receive Date: 20140303
  Receipt Date: 20140303
  Transmission Date: 20141002
  Serious: No
  Sender: FDA-Public Use
  Company Number: US-ABBVIE-13P-163-1039507-00

PATIENT
  Age: 66 Year
  Sex: Female

DRUGS (7)
  1. HUMIRA [Suspect]
     Indication: PSORIASIS
  2. LEVOTHYROXINE [Concomitant]
     Indication: HYPOTHYROIDISM
  3. FLUOXETINE [Concomitant]
     Indication: DEPRESSION
  4. SIMVASTATIN [Concomitant]
     Indication: BLOOD CHOLESTEROL INCREASED
     Dosage: AT NIGHT
  5. CALCIPOTRIENE [Concomitant]
     Indication: PSORIASIS
  6. CYCLOBENZAPRINE [Concomitant]
     Indication: INSOMNIA
     Dosage: AT NIGHT
  7. IBUPROFEN [Concomitant]
     Indication: PRODUCT USED FOR UNKNOWN INDICATION
     Dosage: AT NIGHT BEFORE BED

REACTIONS (1)
  - Burning sensation [Not Recovered/Not Resolved]
